FAERS Safety Report 8215185-9 (Version None)
Quarter: 2012Q1

REPORT INFORMATION
  Report Type: 
  Country: None (occurrence: None)
  Receive Date: 20120316
  Receipt Date: 20120307
  Transmission Date: 20120608
  Serious: Yes (Other)
  Sender: FDA-Public Use
  Company Number: CA-JNJFOC-20120305323

PATIENT
  Sex: Male
  Weight: 95 kg

DRUGS (12)
  1. REMICADE [Suspect]
     Indication: BEHCET'S SYNDROME
     Dosage: INFUSION 10 (PRIOR TO SYMPTOMS)
     Route: 042
     Dates: start: 20120209
  2. ZOPICLONE [Concomitant]
     Indication: INSOMNIA
     Route: 065
  3. PREDNISONE TAB [Concomitant]
     Indication: BEHCET'S SYNDROME
     Route: 048
  4. LATANOPROST [Concomitant]
     Indication: GLAUCOMA
     Route: 047
  5. VITAMIN D [Concomitant]
     Route: 065
  6. RABEPRAZOLE SODIUM [Concomitant]
     Indication: GASTROOESOPHAGEAL REFLUX DISEASE
     Route: 065
  7. CALCIUM [Concomitant]
     Route: 065
  8. TYLENOL [Concomitant]
     Indication: PREMEDICATION
     Route: 048
  9. REMICADE [Suspect]
     Route: 042
     Dates: start: 20110223
  10. CITALOPRAM HYDROBROMIDE [Concomitant]
     Indication: DEPRESSION
     Route: 065
  11. METHOTREXATE [Concomitant]
     Indication: BEHCET'S SYNDROME
     Dosage: LAST DOSE 02-MAR (YEAR UNSPECIFIED)
     Route: 058
  12. RAMIPRIL [Concomitant]
     Indication: HYPERTENSION
     Route: 065

REACTIONS (8)
  - POST PROCEDURAL DISCHARGE [None]
  - MALAISE [None]
  - GASTROINTESTINAL SOUNDS ABNORMAL [None]
  - PYREXIA [None]
  - ABDOMINAL PAIN [None]
  - NAUSEA [None]
  - DECREASED APPETITE [None]
  - DRUG EFFECT DECREASED [None]
